FAERS Safety Report 9426591 (Version 2)
Quarter: 2013Q3

REPORT INFORMATION
  Report Type: Spontaneous
  Country: US (occurrence: US)
  Receive Date: 20130730
  Receipt Date: 20130829
  Transmission Date: 20140515
  Serious: No
  Sender: FDA-Public Use
  Company Number: US-PFIZER INC-2013220034

PATIENT
  Age: 81 Year
  Sex: Male

DRUGS (6)
  1. INLYTA [Suspect]
     Indication: METASTATIC RENAL CELL CARCINOMA
     Dosage: 5 MG, 2X/DAY
     Route: 048
     Dates: start: 20130702
  2. ASPIRIN [Concomitant]
     Dosage: 81 MG, 1X/DAY (QD)
     Route: 048
  3. BENICAR [Concomitant]
     Dosage: 40 MG, 1X/DAY (QD)
     Route: 048
  4. SERTRALINE [Concomitant]
     Dosage: 25 MG, 1X/DAY (QD)
     Route: 048
  5. PREDNISONE [Concomitant]
     Dosage: UNK, TAPER
  6. PHOSPHA 250 [Concomitant]
     Dosage: 250 MG, 1X/DAY
     Route: 048

REACTIONS (2)
  - Stomatitis [Not Recovered/Not Resolved]
  - Decreased appetite [Unknown]
